FAERS Safety Report 9689778 (Version 2)
Quarter: 2013Q4

REPORT INFORMATION
  Report Type: Report from Study
  Country: FR (occurrence: FR)
  Receive Date: 20131115
  Receipt Date: 20131115
  Transmission Date: 20140711
  Serious: Yes (Hospitalization, Other)
  Sender: FDA-Public Use
  Company Number: FR-009507513-2012SP020274

PATIENT
  Age: 53 Year
  Sex: Female
  Weight: 50 kg

DRUGS (6)
  1. BOCEPREVIR [Suspect]
     Indication: HEPATITIS C
     Dosage: 800 MG, TID
     Route: 048
     Dates: start: 20111026, end: 20120418
  2. PEGASYS [Suspect]
     Indication: HEPATITIS C
     Dosage: 180 ?G, QW
     Route: 058
     Dates: start: 20110929, end: 20120419
  3. COPEGUS [Suspect]
     Indication: HEPATITIS C
     Dosage: 200 MG, TID
     Route: 048
     Dates: start: 20110929, end: 20120419
  4. ISENTRESS [Concomitant]
     Indication: HIV INFECTION
     Dosage: 400 MG, BID
     Route: 048
     Dates: start: 20100927
  5. NEORECORMON [Concomitant]
     Indication: ANAEMIA
     Dosage: 30000 IU, QW
     Dates: start: 20111221, end: 20120419
  6. TRUVADA [Concomitant]
     Indication: HIV INFECTION
     Dosage: 200/245
     Dates: start: 20100927

REACTIONS (2)
  - Sepsis [Recovering/Resolving]
  - Lung infection [Recovered/Resolved with Sequelae]
